FAERS Safety Report 8209791-5 (Version None)
Quarter: 2012Q1

REPORT INFORMATION
  Report Type: 
  Country: None (occurrence: None)
  Receive Date: 20120314
  Receipt Date: 20120302
  Transmission Date: 20120608
  Serious: Yes (Other)
  Sender: FDA-Public Use
  Company Number: US-MYLANLABS-2012S1002862

PATIENT
  Age: 15 Year
  Sex: Female

DRUGS (3)
  1. AMNESTEEM [Suspect]
     Indication: ACNE
     Dates: start: 20111001, end: 20120206
  2. NAPROSYN [Concomitant]
     Indication: HEADACHE
  3. AMNESTEEM [Suspect]
     Route: 048
     Dates: start: 20111026, end: 20120206

REACTIONS (3)
  - SUICIDAL IDEATION [None]
  - DEPRESSION [None]
  - ANXIETY [None]
